FAERS Safety Report 7346114-8 (Version None)
Quarter: 2011Q1

REPORT INFORMATION
  Report Type: 
  Country: None (occurrence: None)
  Receive Date: 20110311
  Receipt Date: 20110224
  Transmission Date: 20110831
  Serious: Yes (Hospitalization, Other)
  Sender: FDA-Public Use
  Company Number: US-BAYER-201033322NA

PATIENT
  Sex: Female
  Weight: 91 kg

DRUGS (12)
  1. ZEGERID [Concomitant]
  2. ALLEGRA [Concomitant]
     Dosage: UNK
     Route: 048
     Dates: start: 20070721
  3. SEASONALE [Concomitant]
  4. ANTIBIOTICS [Concomitant]
     Dosage: UNK
     Dates: start: 20070721
  5. ZEGERID [Concomitant]
  6. MULTI-VITAMINS [Concomitant]
  7. IBUPROFEN [Concomitant]
  8. NAPROXEN [Concomitant]
  9. YASMIN [Suspect]
     Route: 048
     Dates: start: 20070101, end: 20080819
  10. YAZ [Suspect]
     Indication: PERIODONTAL DISEASE
     Route: 048
     Dates: start: 20070101, end: 20080819
  11. OCELLA [Suspect]
     Route: 048
     Dates: start: 20070101, end: 20080819
  12. FLEXERIL [Concomitant]

REACTIONS (20)
  - SYNCOPE [None]
  - NECK PAIN [None]
  - DIARRHOEA [None]
  - CHOLELITHIASIS [None]
  - PAIN [None]
  - INCISION SITE INFECTION [None]
  - APPENDICECTOMY [None]
  - CHOLECYSTITIS CHRONIC [None]
  - WOUND INFECTION STAPHYLOCOCCAL [None]
  - FATIGUE [None]
  - DEPRESSION [None]
  - ANHEDONIA [None]
  - EMOTIONAL DISTRESS [None]
  - IRRITABLE BOWEL SYNDROME [None]
  - BILIARY DYSKINESIA [None]
  - INTENTIONAL OVERDOSE [None]
  - INSOMNIA [None]
  - GALLBLADDER INJURY [None]
  - SCAR [None]
  - ABDOMINAL PAIN [None]
